FAERS Safety Report 23698927 (Version 1)
Quarter: 2024Q2

REPORT INFORMATION
  Report Type: Spontaneous
  Country: US (occurrence: US)
  Receive Date: 20240402
  Receipt Date: 20240402
  Transmission Date: 20240716
  Serious: Yes (Other)
  Sender: FDA-Public Use
  Company Number: US-009507513-2403USA009653

PATIENT
  Sex: Female

DRUGS (3)
  1. TICE BCG [Suspect]
     Active Substance: BACILLUS CALMETTE-GUERIN SUBSTRAIN TICE LIVE ANTIGEN
     Indication: Bladder cancer
     Dosage: UNK
     Route: 043
  2. GEMCITABINE [Suspect]
     Active Substance: GEMCITABINE
     Indication: Bladder cancer
     Dosage: UNK
  3. DOCETAXEL [Suspect]
     Active Substance: DOCETAXEL\DOCETAXEL ANHYDROUS
     Indication: Bladder cancer

REACTIONS (23)
  - Bladder transitional cell carcinoma recurrent [Not Recovered/Not Resolved]
  - Urethral cancer [Unknown]
  - Aortic arteriosclerosis [Unknown]
  - Renal cyst [Unknown]
  - Dysuria [Unknown]
  - Fall [Unknown]
  - Stress urinary incontinence [Unknown]
  - Urge incontinence [Unknown]
  - Cellulitis [Unknown]
  - Diverticulum intestinal [Unknown]
  - Dry skin [Unknown]
  - Diarrhoea [Unknown]
  - Dyspnoea [Unknown]
  - Feeling cold [Unknown]
  - Vulvovaginal pruritus [Unknown]
  - Blood urea increased [Unknown]
  - Glomerular filtration rate abnormal [Unknown]
  - Anion gap decreased [Unknown]
  - Red blood cell count decreased [Unknown]
  - Mean cell haemoglobin increased [Unknown]
  - White blood cell count increased [Unknown]
  - Mean cell volume increased [Unknown]
  - Neutrophil count increased [Unknown]

NARRATIVE: CASE EVENT DATE: 20210101
